FAERS Safety Report 5730383-1 (Version None)
Quarter: 2008Q2

REPORT INFORMATION
  Report Type: 
  Country: None (occurrence: None)
  Receive Date: 20080505
  Receipt Date: 20080505
  Transmission Date: 20081010
  Serious: Yes (Other)
  Sender: FDA-Public Use
  Company Number: None

PATIENT
  Age: 38 Year
  Sex: Female
  Weight: 67.1324 kg

DRUGS (1)
  1. LEVOTHYROXINE SODIUM [Suspect]
     Indication: BLOOD THYROID STIMULATING HORMONE DECREASED
     Dosage: 50MCG 1X PER DAY PO
     Route: 048
     Dates: start: 20080401, end: 20080415

REACTIONS (2)
  - PRURITUS [None]
  - URTICARIA [None]
